FAERS Safety Report 5151268-8 (Version None)
Quarter: 2006Q4

REPORT INFORMATION
  Report Type: 
  Country: None (occurrence: None)
  Receive Date: 20061115
  Receipt Date: 20060324
  Transmission Date: 20070319
  Serious: Yes (Other)
  Sender: FDA-Public Use
  Company Number: US-GLAXOSMITHKLINE-A0598912A

PATIENT
  Age: 54 Year
  Sex: Male

DRUGS (3)
  1. GOODY'S EXTRA STRENGTH HEADACHE POWDER [Suspect]
     Indication: ARTHRITIS
  2. ALCOHOL [Concomitant]
  3. ACID REFLUX MED. [Concomitant]

REACTIONS (5)
  - DEPENDENCE [None]
  - MALAISE [None]
  - PANIC REACTION [None]
  - PHARMACEUTICAL PRODUCT COMPLAINT [None]
  - UPPER LIMB FRACTURE [None]
